FAERS Safety Report 7823507-3 (Version None)
Quarter: 2011Q4

REPORT INFORMATION
  Report Type: 
  Country: None (occurrence: None)
  Receive Date: 20111019
  Receipt Date: 20111012
  Transmission Date: 20120403
  Serious: Yes (Hospitalization, Other)
  Sender: FDA-Public Use
  Company Number: CA-PFIZER INC-2011169750

PATIENT
  Age: 20 Year
  Sex: Male

DRUGS (8)
  1. BACLOFEN [Concomitant]
     Dosage: 10 MG, 3X/DAY
     Dates: start: 20030101
  2. ZIPRASIDONE HYDROCHLORIDE [Suspect]
     Indication: IMPULSIVE BEHAVIOUR
     Dosage: 20-80
     Route: 048
     Dates: start: 20080320, end: 20110727
  3. ZIPRASIDONE HYDROCHLORIDE [Suspect]
     Indication: DEPRESSION
  4. ZIPRASIDONE HYDROCHLORIDE [Suspect]
     Indication: OBESITY
  5. ADDERALL 5 [Concomitant]
     Indication: ATTENTION DEFICIT/HYPERACTIVITY DISORDER
     Dosage: 20 MG, 1X/DAY MORNING
     Route: 048
     Dates: start: 20111001
  6. CELEXA [Concomitant]
     Indication: DEPRESSION
     Dosage: 40 MG, 1X/DAY
     Route: 048
     Dates: start: 20030601
  7. ZIPRASIDONE HYDROCHLORIDE [Suspect]
     Indication: AGGRESSION
  8. SEROQUEL [Concomitant]
     Indication: SLEEP DISORDER
     Dosage: 25 MG AT BEDTIME
     Dates: start: 20081203

REACTIONS (2)
  - STATUS EPILEPTICUS [None]
  - LACTIC ACIDOSIS [None]
